FAERS Safety Report 19109080 (Version 2)
Quarter: 2021Q2

REPORT INFORMATION
  Report Type: Spontaneous
  Country: DE (occurrence: DE)
  Receive Date: 20210408
  Receipt Date: 20210423
  Transmission Date: 20210717
  Serious: Yes (Other)
  Sender: FDA-Public Use
  Company Number: DE-TEVA-2021-DE-1897658

PATIENT
  Age: 35 Year
  Sex: Female

DRUGS (2)
  1. ARIPIPRAZOL [Suspect]
     Active Substance: ARIPIPRAZOLE
     Dosage: PROBABLY ALREADY MIXED IN SEVERAL TIMES (COFFEE, DRINK, FOOD)
     Route: 048
  2. L?THYROXIN 150 MICROG [Concomitant]

REACTIONS (5)
  - Accidental exposure to product [Recovered/Resolved]
  - Feeling abnormal [Recovered/Resolved]
  - Illusion [Recovered/Resolved]
  - Renal disorder [Recovered/Resolved]
  - Tunnel vision [Recovered/Resolved]
